FAERS Safety Report 6642897-0 (Version None)
Quarter: 2010Q1

REPORT INFORMATION
  Report Type: 
  Country: None (occurrence: None)
  Receive Date: 20100319
  Receipt Date: 20100305
  Transmission Date: 20100710
  Serious: Yes (Disabling, Other)
  Sender: FDA-Public Use
  Company Number: US-ELI_LILLY_AND_COMPANY-US201003002882

PATIENT
  Age: 50 Year
  Sex: Male

DRUGS (1)
  1. EFFIENT [Suspect]
     Dosage: 10 MG, DAILY (1/D)

REACTIONS (1)
  - ISCHAEMIC STROKE [None]
